FAERS Safety Report 22371891 (Version 1)
Quarter: 2023Q2

REPORT INFORMATION
  Report Type: Spontaneous
  Country: US (occurrence: US)
  Receive Date: 20230526
  Receipt Date: 20230526
  Transmission Date: 20230722
  Serious: No
  Sender: FDA-Public Use
  Company Number: US-BRISTOL-MYERS SQUIBB COMPANY-2023-073987

PATIENT
  Age: 86 Year
  Sex: Female
  Weight: 81.65 kg

DRUGS (1)
  1. REVLIMID [Suspect]
     Active Substance: LENALIDOMIDE
     Indication: Non-Hodgkin^s lymphoma
     Dosage: DOSE : 20 MG;     FREQ : 3 WEEKS ON 1 WEEK OFF
     Route: 048
     Dates: start: 202303

REACTIONS (1)
  - Inappropriate schedule of product administration [Unknown]
